FAERS Safety Report 15364696 (Version 1)
Quarter: 2018Q3

REPORT INFORMATION
  Report Type: Spontaneous
  Country: GR (occurrence: GR)
  Receive Date: 20180910
  Receipt Date: 20180910
  Transmission Date: 20181010
  Serious: Yes (Other)
  Sender: FDA-Public Use
  Company Number: GR-ROCHE-2180325

PATIENT
  Age: 45 Year
  Sex: Male

DRUGS (7)
  1. DGL DEGLYCYRRHIZINATE [Concomitant]
     Indication: ADENOCARCINOMA OF COLON
     Route: 065
     Dates: start: 201202, end: 201410
  2. OXALIPLATIN. [Concomitant]
     Active Substance: OXALIPLATIN
  3. AVASTIN [Suspect]
     Active Substance: BEVACIZUMAB
     Indication: ADENOCARCINOMA OF COLON
     Route: 065
     Dates: start: 201202, end: 201410
  4. CAPECITABINE. [Concomitant]
     Active Substance: CAPECITABINE
     Route: 065
  5. FOLINIC ACID [Concomitant]
     Active Substance: LEUCOVORIN
  6. AFLIBERCEPT [Concomitant]
     Active Substance: AFLIBERCEPT
  7. FLUOROURACIL. [Concomitant]
     Active Substance: FLUOROURACIL

REACTIONS (2)
  - Albuminuria [Unknown]
  - Neoplasm recurrence [Unknown]
